FAERS Safety Report 4474086-2 (Version None)
Quarter: 2004Q4

REPORT INFORMATION
  Report Type: 
  Country: None (occurrence: None)
  Receive Date: 20041014
  Receipt Date: 20041006
  Transmission Date: 20050328
  Serious: Yes (Hospitalization, Other)
  Sender: FDA-Public Use
  Company Number: US-JNJFOC-20040501609

PATIENT
  Age: 52 Year
  Sex: Female
  Weight: 148.33 kg

DRUGS (9)
  1. NATRECOR [Suspect]
     Dosage: WEEKLY DOSING
     Route: 042
  2. NATRECOR [Suspect]
     Dosage: EVERY OTHER WEEK DOSING OVER 10 HOURS
     Route: 042
  3. NATRECOR [Suspect]
     Dosage: WEEKLY DOSING OVER EIGHT HOURS
     Route: 042
  4. HUMULIN 70/30 [Concomitant]
     Route: 058
  5. HUMULIN 70/30 [Concomitant]
     Dosage: 430 UNITS IN THE MORNING AND 330 UNITS AT NIGHT
     Route: 058
  6. RESTORIL [Concomitant]
  7. ALDACTONE [Concomitant]
     Route: 049
  8. BUMEX [Concomitant]
     Route: 049
  9. PREVACID [Concomitant]
     Route: 049

REACTIONS (7)
  - BLOOD GLUCOSE INCREASED [None]
  - COLD SWEAT [None]
  - DIZZINESS [None]
  - HYPOTENSION [None]
  - NAUSEA [None]
  - UNEXPECTED THERAPEUTIC DRUG EFFECT [None]
  - WEIGHT DECREASED [None]
